FAERS Safety Report 5816663-X (Version None)
Quarter: 2008Q3

REPORT INFORMATION
  Report Type: 
  Country: None (occurrence: None)
  Receive Date: 20080721
  Receipt Date: 20080709
  Transmission Date: 20090109
  Serious: Yes (Other)
  Sender: FDA-Public Use
  Company Number: JP-PFIZER INC-2008054522

PATIENT
  Age: 41 Year
  Sex: Female

DRUGS (3)
  1. EPLERENONE [Suspect]
     Indication: HYPERTENSION
     Dosage: DAILY DOSE:25MG
     Route: 048
     Dates: start: 20080527, end: 20080619
  2. OLMETEC [Concomitant]
     Route: 048
  3. OLMETEC [Concomitant]
     Route: 048

REACTIONS (1)
  - AMENORRHOEA [None]
